FAERS Safety Report 12649266 (Version 1)
Quarter: 2016Q3

REPORT INFORMATION
  Report Type: Report from Study
  Country: US (occurrence: US)
  Receive Date: 20160812
  Receipt Date: 20160812
  Transmission Date: 20161109
  Serious: Yes (Hospitalization)
  Sender: FDA-Public Use
  Company Number: US-TEVA-660725USA

PATIENT
  Age: 51 Year
  Sex: Female

DRUGS (4)
  1. ARTHAXAN [Concomitant]
     Dosage: 4 MILLIGRAM DAILY;
  2. CLOZAPINE. [Suspect]
     Active Substance: CLOZAPINE
     Route: 048
  3. SEROQUEL [Suspect]
     Active Substance: QUETIAPINE FUMARATE
     Dosage: 200 MILLIGRAM DAILY;
  4. DEPAKOTE [Suspect]
     Active Substance: DIVALPROEX SODIUM
     Dosage: 1750 MILLIGRAM DAILY;

REACTIONS (4)
  - Seizure [Recovering/Resolving]
  - Craniocerebral injury [Recovering/Resolving]
  - Cervical vertebral fracture [Recovering/Resolving]
  - Fall [Unknown]

NARRATIVE: CASE EVENT DATE: 20160303
